FAERS Safety Report 10229725 (Version 1)
Quarter: 2014Q2

REPORT INFORMATION
  Report Type: Report from Study
  Country: RU (occurrence: RU)
  Receive Date: 20140611
  Receipt Date: 20140611
  Transmission Date: 20141212
  Serious: Yes (Disabling, Other)
  Sender: FDA-Public Use
  Company Number: PHHY2014RU071055

PATIENT
  Sex: Female

DRUGS (3)
  1. ACLASTA [Suspect]
     Indication: OSTEOPOROSIS
     Dosage: UNK
     Route: 042
     Dates: start: 2011
  2. ACLASTA [Suspect]
     Dosage: UNK
     Route: 042
     Dates: start: 2012
  3. ACLASTA [Suspect]
     Dosage: UNK
     Route: 042
     Dates: start: 2013

REACTIONS (2)
  - Radius fracture [Not Recovered/Not Resolved]
  - Fall [Unknown]
